FAERS Safety Report 5867142-5 (Version None)
Quarter: 2008Q3

REPORT INFORMATION
  Report Type: 
  Country: None (occurrence: None)
  Receive Date: 20080828
  Receipt Date: 20080828
  Transmission Date: 20090109
  Serious: Yes (Other)
  Sender: FDA-Public Use
  Company Number: None

PATIENT
  Age: 54 Year
  Sex: Female
  Weight: 91.672 kg

DRUGS (4)
  1. OXALIPLATIN [Suspect]
     Indication: RECTAL NEOPLASM
     Dosage: 170 MG EVERY 2 WEEKS IV DRIP
     Route: 041
     Dates: start: 20080813, end: 20080827
  2. LEUCOVORIN CALCIUM [Concomitant]
  3. DEXAMETHASONE TAB [Concomitant]
  4. PALONOSETRON [Concomitant]

REACTIONS (4)
  - DYSPNOEA [None]
  - HYPERTENSION [None]
  - TREMOR [None]
  - WHEEZING [None]
